FAERS Safety Report 21546382 (Version 2)
Quarter: 2022Q4

REPORT INFORMATION
  Report Type: Spontaneous
  Country: US (occurrence: US)
  Receive Date: 20221103
  Receipt Date: 20221205
  Transmission Date: 20230113
  Serious: No
  Sender: FDA-Public Use
  Company Number: US-PFIZER INC-202201228895

PATIENT
  Age: 5 Year
  Sex: Female
  Weight: 14.97 kg

DRUGS (1)
  1. GENOTROPIN [Suspect]
     Active Substance: SOMATROPIN
     Dosage: 0.8

REACTIONS (4)
  - Device use issue [Unknown]
  - Device breakage [Unknown]
  - Device physical property issue [Unknown]
  - Poor quality device used [Unknown]
